FAERS Safety Report 4665998-5 (Version None)
Quarter: 2005Q2

REPORT INFORMATION
  Report Type: 
  Country: None (occurrence: None)
  Receive Date: 20050517
  Receipt Date: 20050517
  Transmission Date: 20051028
  Serious: Yes (Hospitalization)
  Sender: FDA-Public Use
  Company Number: None

PATIENT
  Age: 44 Year
  Sex: Male
  Weight: 65.7716 kg

DRUGS (6)
  1. HALOPERIDOL [Suspect]
     Indication: PSYCHOTIC DISORDER
     Dosage: 2 MG ONCE IM
     Route: 030
     Dates: start: 20050118, end: 20050118
  2. PROPYLTHIOURACIL [Concomitant]
  3. METHYLDOPA [Concomitant]
  4. PRENATAL VITAMINS [Concomitant]
  5. TAC [Concomitant]
  6. PROPRANOLOL [Concomitant]

REACTIONS (1)
  - DYSTONIA [None]
